FAERS Safety Report 6069757-0 (Version None)
Quarter: 2009Q1

REPORT INFORMATION
  Report Type: 
  Country: None (occurrence: None)
  Receive Date: 20090209
  Receipt Date: 20090202
  Transmission Date: 20090719
  Serious: Yes (Hospitalization, Other)
  Sender: FDA-Public Use
  Company Number: US-AMGEN-QUU331541

PATIENT
  Sex: Female

DRUGS (2)
  1. ENBREL [Suspect]
     Indication: PSORIATIC ARTHROPATHY
     Route: 058
     Dates: start: 20030401
  2. METHOTREXATE [Concomitant]
     Route: 048

REACTIONS (2)
  - HIP ARTHROPLASTY [None]
  - INTERVERTEBRAL DISC COMPRESSION [None]
